FAERS Safety Report 11812803 (Version 1)
Quarter: 2015Q4

REPORT INFORMATION
  Report Type: Spontaneous
  Country: US (occurrence: US)
  Receive Date: 20151209
  Receipt Date: 20151209
  Transmission Date: 20160305
  Serious: No
  Sender: FDA-Public Use
  Company Number: US-HOSPIRA-2735792

PATIENT
  Sex: Female

DRUGS (2)
  1. DIPYRIDAMOLE. [Suspect]
     Active Substance: DIPYRIDAMOLE
     Indication: PRODUCT USED FOR UNKNOWN INDICATION
     Dosage: NOT REPORTED
     Dates: start: 20150128
  2. AMINOPHYLLINE. [Suspect]
     Active Substance: AMINOPHYLLINE
     Indication: SURGERY
     Dosage: NOT REPORTED
     Dates: start: 20150128, end: 20150128

REACTIONS (2)
  - Product quality issue [Recovered/Resolved]
  - Chills [Recovered/Resolved]

NARRATIVE: CASE EVENT DATE: 20150128
